FAERS Safety Report 7230960-5 (Version None)
Quarter: 2011Q1

REPORT INFORMATION
  Report Type: 
  Country: None (occurrence: None)
  Receive Date: 20110107
  Receipt Date: 20110105
  Transmission Date: 20110831
  Serious: Yes (Other)
  Sender: FDA-Public Use
  Company Number: 2010AT000096

PATIENT

DRUGS (1)
  1. ALPROSTADIL [Suspect]
     Indication: EBSTEIN'S ANOMALY

REACTIONS (8)
  - CONGENITAL PULMONARY VALVE ATRESIA [None]
  - MULTI-ORGAN FAILURE [None]
  - PULMONARY VALVE INCOMPETENCE [None]
  - CAESAREAN SECTION [None]
  - HYDROPS FOETALIS [None]
  - EBSTEIN'S ANOMALY [None]
  - PATENT DUCTUS ARTERIOSUS [None]
  - MATERNAL DRUGS AFFECTING FOETUS [None]
